FAERS Safety Report 16574771 (Version 2)
Quarter: 2019Q3

REPORT INFORMATION
  Report Type: Spontaneous
  Country: US (occurrence: US)
  Receive Date: 20190715
  Receipt Date: 20190729
  Transmission Date: 20191004
  Serious: Yes (Other)
  Sender: FDA-Public Use
  Company Number: US-ELI_LILLY_AND_COMPANY-US201907007654

PATIENT
  Sex: Female

DRUGS (1)
  1. FORTEO [Suspect]
     Active Substance: TERIPARATIDE
     Indication: PRODUCT USED FOR UNKNOWN INDICATION
     Dosage: UNK, UNKNOWN
     Route: 065
     Dates: start: 20190617

REACTIONS (7)
  - Mental impairment [Unknown]
  - Fatigue [Unknown]
  - Lymphoma [Unknown]
  - Neoplasm malignant [Unknown]
  - Back pain [Recovering/Resolving]
  - Visual impairment [Unknown]
  - Stress [Unknown]

NARRATIVE: CASE EVENT DATE: 20190626
